FAERS Safety Report 10186182 (Version 2)
Quarter: 2014Q2

REPORT INFORMATION
  Report Type: Spontaneous
  Country: US (occurrence: US)
  Receive Date: 20140521
  Receipt Date: 20140624
  Transmission Date: 20141212
  Serious: Yes (Death)
  Sender: FDA-Public Use
  Company Number: US-GLAXOSMITHKLINE-A1073484A

PATIENT
  Age: 65 Year
  Sex: Male

DRUGS (3)
  1. VOTRIENT [Suspect]
     Indication: SOFT TISSUE SARCOMA
     Dosage: 800MG PER DAY
     Route: 048
     Dates: start: 20140222
  2. SIMVASTATIN [Concomitant]
  3. VALACYCLOVIR [Concomitant]

REACTIONS (1)
  - Death [Fatal]
